FAERS Safety Report 17565813 (Version 6)
Quarter: 2021Q2

REPORT INFORMATION
  Report Type: Spontaneous
  Country: CN (occurrence: CN)
  Receive Date: 20200320
  Receipt Date: 20210412
  Transmission Date: 20210716
  Serious: Yes (Hospitalization)
  Sender: FDA-Public Use
  Company Number: CN-CELGENEUS-CHN-20200305846

PATIENT
  Age: 61 Year
  Sex: Male
  Weight: 63 kg

DRUGS (20)
  1. SERPLULIMAB. [Suspect]
     Active Substance: SERPLULIMAB
     Indication: LUNG SQUAMOUS CELL CARCINOMA METASTATIC
     Dosage: 272.3MG (C1D1), 272MG (C3D1)
     Route: 041
     Dates: start: 20191220, end: 20200205
  2. PROGESTERONE. [Concomitant]
     Active Substance: PROGESTERONE
     Indication: RENAL VESSEL DISORDER
     Route: 041
  3. ATORVASTATIN CALCIUM. [Concomitant]
     Active Substance: ATORVASTATIN CALCIUM
     Dosage: 20 MILLIGRAM
     Route: 048
     Dates: start: 2020, end: 20200411
  4. PALONOSETRON HYDROCHLORIDE. [Concomitant]
     Active Substance: PALONOSETRON HYDROCHLORIDE
     Indication: PROPHYLAXIS
     Route: 041
     Dates: start: 20200212, end: 20200212
  5. MOXIFLOXACIN HYDROCHLORIDE. [Concomitant]
     Active Substance: MOXIFLOXACIN HYDROCHLORIDE
     Indication: ANTI-INFECTIVE THERAPY
     Dosage: .4 GRAM
     Route: 041
     Dates: start: 20200919
  6. COMPOUND SODIUM ACETATE RINGER [Concomitant]
     Indication: NUTRITIONAL SUPPLEMENTATION
     Dosage: 250 MILLILITER
     Route: 041
     Dates: start: 20200916
  7. POTASSIUM CHLORIDE. [Concomitant]
     Active Substance: POTASSIUM CHLORIDE
     Indication: MINERAL SUPPLEMENTATION
     Dosage: 3 GRAM
     Route: 048
     Dates: start: 20200917
  8. ABRAXANE [Suspect]
     Active Substance: PACLITAXEL
     Indication: LUNG SQUAMOUS CELL CARCINOMA METASTATIC
     Dosage: 167 MG (C1D1), 171MG (C3D1)
     Route: 041
     Dates: start: 20191220, end: 20200212
  9. SODIUM CHLORIDE. [Concomitant]
     Active Substance: SODIUM CHLORIDE
     Indication: ANTI-INFECTIVE THERAPY
     Dosage: .4 GRAM
     Route: 041
     Dates: start: 20200919
  10. CARBOPLATIN. [Suspect]
     Active Substance: CARBOPLATIN
     Indication: LUNG SQUAMOUS CELL CARCINOMA METASTATIC
     Dosage: 613 MG (C1D1), 567.8 MG (C3D1)
     Route: 041
     Dates: start: 20191220, end: 20200205
  11. CLOPIDOGREL HYDROGEN SULFATE [Concomitant]
     Active Substance: CLOPIDOGREL BISULFATE
     Indication: EXTRASYSTOLES
     Dosage: 75 MILLIGRAM
     Route: 048
     Dates: start: 20191229, end: 20200811
  12. AZITHROMYCIN ANHYDROUS. [Concomitant]
     Active Substance: AZITHROMYCIN ANHYDROUS
     Indication: ANTIINFLAMMATORY THERAPY
     Dosage: .5 GRAM
     Route: 041
     Dates: start: 20200914
  13. LATAMOXEF SODIUM [Concomitant]
     Indication: ANTIINFLAMMATORY THERAPY
     Dosage: 2 GRAM
     Route: 041
     Dates: start: 20200916
  14. CLOPIDOGREL HYDROGEN SULFATE [Concomitant]
     Active Substance: CLOPIDOGREL BISULFATE
     Dosage: 75 MILLIGRAM
     Route: 048
     Dates: start: 2020, end: 20200411
  15. REDUCED GLUTATHIONE [Concomitant]
     Indication: ANTIOXIDANT THERAPY
     Dosage: 2.4 GRAM
     Route: 041
     Dates: start: 20200914
  16. FUDOSTEINE [Concomitant]
     Active Substance: FUDOSTEINE
     Indication: PRODUCTIVE COUGH
     Dosage: 1.2 GRAM
     Route: 048
     Dates: start: 20200919
  17. ALPROSTADIL. [Concomitant]
     Active Substance: ALPROSTADIL
     Indication: RENAL VESSEL DISORDER
     Dosage: 20 MICROGRAM
     Route: 041
     Dates: start: 20200916
  18. ATORVASTATIN CALCIUM. [Concomitant]
     Active Substance: ATORVASTATIN CALCIUM
     Indication: EXTRASYSTOLES
     Dosage: 20 MILLIGRAM
     Route: 048
     Dates: start: 20191229, end: 20200811
  19. TOLVAPTAN [Concomitant]
     Active Substance: TOLVAPTAN
     Indication: HYPONATRAEMIA
     Dosage: 15 MILLIGRAM
     Route: 048
     Dates: start: 20200916
  20. COMPOUND AMINO ACID [Concomitant]
     Active Substance: AMINO ACIDS, SOURCE UNSPECIFIED
     Indication: NUTRITIONAL SUPPLEMENTATION
     Dosage: 200 MILLILITER
     Route: 041
     Dates: start: 20200914

REACTIONS (1)
  - Renal impairment [Not Recovered/Not Resolved]

NARRATIVE: CASE EVENT DATE: 20200227
